FAERS Safety Report 24712011 (Version 1)
Quarter: 2024Q4

REPORT INFORMATION
  Report Type: Spontaneous
  Country: US (occurrence: US)
  Receive Date: 20241209
  Receipt Date: 20241209
  Transmission Date: 20250115
  Serious: Yes (Other)
  Sender: ALEXION PHARMACEUTICALS
  Company Number: 202412USA002949US

PATIENT

DRUGS (8)
  1. FASLODEX [Suspect]
     Active Substance: FULVESTRANT
     Indication: Breast cancer metastatic
     Route: 065
  2. FASLODEX [Suspect]
     Active Substance: FULVESTRANT
     Route: 065
  3. FASLODEX [Suspect]
     Active Substance: FULVESTRANT
     Route: 065
  4. FASLODEX [Suspect]
     Active Substance: FULVESTRANT
     Route: 065
  5. PALBOCICLIB [Suspect]
     Active Substance: PALBOCICLIB
     Indication: Breast cancer metastatic
     Route: 065
  6. PALBOCICLIB [Suspect]
     Active Substance: PALBOCICLIB
     Route: 065
  7. PALBOCICLIB [Suspect]
     Active Substance: PALBOCICLIB
     Route: 065
  8. PALBOCICLIB [Suspect]
     Active Substance: PALBOCICLIB
     Route: 065

REACTIONS (21)
  - Lymphocyte count decreased [Unknown]
  - Diarrhoea [Unknown]
  - Fatigue [Unknown]
  - White blood cell count decreased [Unknown]
  - Red blood cell count decreased [Unknown]
  - Mean cell haemoglobin increased [Unknown]
  - Platelet count decreased [Unknown]
  - Neutrophil count decreased [Unknown]
  - Blood glucose increased [Unknown]
  - Blood urea increased [Unknown]
  - Glomerular filtration rate decreased [Unknown]
  - Carbon dioxide increased [Unknown]
  - Red blood cell sedimentation rate increased [Unknown]
  - Haematocrit decreased [Unknown]
  - Blood creatinine abnormal [Unknown]
  - Carbohydrate antigen 15-3 increased [Unknown]
  - Carbohydrate antigen 27.29 increased [Unknown]
  - Lymphocyte percentage abnormal [Unknown]
  - Neutrophil percentage abnormal [Unknown]
  - Mean cell volume abnormal [Unknown]
  - Injection site pain [Unknown]
